FAERS Safety Report 8415587-1 (Version None)
Quarter: 2012Q2

REPORT INFORMATION
  Report Type: 
  Country: None (occurrence: None)
  Receive Date: 20120323
  Receipt Date: 20111021
  Transmission Date: 20120825
  Serious: Yes (Other)
  Sender: FDA-Public Use
  Company Number: 163-21880-11102656

PATIENT
  Age: 75 Year
  Sex: Female

DRUGS (3)
  1. INSULIN [Concomitant]
  2. LISINOPRIL [Concomitant]
  3. REVLIMID [Suspect]
     Indication: MYELODYSPLASTIC SYNDROME
     Dosage: 10 MG, DAYS 1-21/Q 28, PO
     Route: 048
     Dates: start: 20111018

REACTIONS (3)
  - FATIGUE [None]
  - ANAEMIA [None]
  - PYREXIA [None]
